FAERS Safety Report 18819289 (Version 1)
Quarter: 2021Q1

REPORT INFORMATION
  Report Type: Spontaneous
  Country: IT (occurrence: IT)
  Receive Date: 20210201
  Receipt Date: 20210201
  Transmission Date: 20210419
  Serious: Yes (Other)
  Sender: FDA-Public Use
  Company Number: IT-MYLANLABS-2021M1005937

PATIENT
  Age: 61 Year
  Sex: Male

DRUGS (10)
  1. PREDNISONE. [Suspect]
     Active Substance: PREDNISONE
     Indication: MYASTHENIA GRAVIS
     Dosage: 65 MILLIGRAM, QD 0.60 MG/KG/DAY
     Route: 065
     Dates: start: 201510
  2. AZATHIOPRINE. [Suspect]
     Active Substance: AZATHIOPRINE
     Dosage: 175 MILLIGRAM, QD
     Route: 065
     Dates: start: 201610
  3. PYRIDOSTIGMINE [Concomitant]
     Active Substance: PYRIDOSTIGMINE
     Dosage: 90 MILLIGRAM, QID
     Route: 065
  4. PREDNISONE. [Suspect]
     Active Substance: PREDNISONE
     Dosage: 62.5 MILLIGRAM, QD 0.63 MG/KG/DAY
     Route: 065
     Dates: start: 201512
  5. PACLITAXEL. [Suspect]
     Active Substance: PACLITAXEL
     Indication: KAPOSI^S SARCOMA
     Dosage: 100 MILLIGRAM/SQ. METER, QW...
     Route: 042
  6. PACLITAXEL. [Suspect]
     Active Substance: PACLITAXEL
     Indication: HUMAN HERPESVIRUS 8 INFECTION
  7. AZATHIOPRINE. [Suspect]
     Active Substance: AZATHIOPRINE
     Indication: MYASTHENIA GRAVIS
     Dosage: 150 MILLIGRAM, QD
     Route: 065
     Dates: start: 201512
  8. PREDNISONE. [Suspect]
     Active Substance: PREDNISONE
     Dosage: 30 MILLIGRAM, QD
     Route: 065
     Dates: start: 201610
  9. PYRIDOSTIGMINE [Concomitant]
     Active Substance: PYRIDOSTIGMINE
     Indication: MYASTHENIA GRAVIS
     Dosage: 60 MILLIGRAM, QID
     Route: 065
     Dates: start: 201510
  10. PREDNISONE. [Suspect]
     Active Substance: PREDNISONE
     Dosage: 50 MILLIGRAM, QD 0.53 MG/KG/DAY
     Route: 065

REACTIONS (4)
  - Human herpesvirus 8 infection [Recovering/Resolving]
  - Kaposi^s sarcoma [Recovering/Resolving]
  - Pulmonary embolism [Unknown]
  - Axonal neuropathy [Unknown]

NARRATIVE: CASE EVENT DATE: 201610
